APPROVED DRUG PRODUCT: NYSTATIN
Active Ingredient: NYSTATIN
Strength: 100,000 UNITS
Dosage Form/Route: TABLET;VAGINAL
Application: A062509 | Product #001
Applicant: QUANTUM PHARMICS LTD
Approved: Apr 3, 1984 | RLD: No | RS: No | Type: DISCN